FAERS Safety Report 20083859 (Version 1)
Quarter: 2021Q4

REPORT INFORMATION
  Report Type: Spontaneous
  Country: US (occurrence: US)
  Receive Date: 20211118
  Receipt Date: 20211118
  Transmission Date: 20220303
  Serious: No
  Sender: FDA-Public Use
  Company Number: US-APOTEX-2021AP045295

PATIENT
  Age: 59 Year
  Sex: Female

DRUGS (2)
  1. APO-VARENICLINE [Suspect]
     Active Substance: VARENICLINE TARTRATE
     Indication: Smoking cessation therapy
     Dosage: 1 DOSAGE FORM, BID
     Route: 048
     Dates: start: 20211002, end: 20211103
  2. CALCIUM;MAGNESIUM [Concomitant]
     Indication: Supplementation therapy
     Dosage: 3 DOSAGE FORM, QD
     Route: 048

REACTIONS (3)
  - Pruritus [Recovered/Resolved]
  - Rash papular [Recovering/Resolving]
  - Rash [Recovering/Resolving]

NARRATIVE: CASE EVENT DATE: 20211001
